FAERS Safety Report 7446517-7 (Version None)
Quarter: 2011Q2

REPORT INFORMATION
  Report Type: 
  Country: None (occurrence: None)
  Receive Date: 20110429
  Receipt Date: 20100712
  Transmission Date: 20111010
  Serious: Yes (Hospitalization)
  Sender: FDA-Public Use
  Company Number: US-ASTRAZENECA-2010SE32329

PATIENT
  Sex: Female

DRUGS (2)
  1. SYMBICORT [Suspect]
     Dosage: 160/4.5 UG
     Route: 055
  2. NEXIUM [Suspect]
     Route: 048

REACTIONS (2)
  - HYPERSENSITIVITY [None]
  - TACHYCARDIA [None]
